FAERS Safety Report 16542318 (Version 1)
Quarter: 2019Q3

REPORT INFORMATION
  Report Type: Spontaneous
  Country: CA (occurrence: CA)
  Receive Date: 20190708
  Receipt Date: 20190708
  Transmission Date: 20191004
  Serious: Yes (Death, Life-Threatening, Hospitalization, Other)
  Sender: FDA-Public Use
  Company Number: CA-BAXTER-2019BAX012986

PATIENT
  Age: 6 Day
  Weight: .56 kg

DRUGS (14)
  1. TOBRAMYCIN. [Suspect]
     Active Substance: TOBRAMYCIN
     Indication: ANTIBIOTIC PROPHYLAXIS
     Route: 065
     Dates: start: 2016
  2. SULFAMETHOXAZOLE, TRIMETHOPRIM [Suspect]
     Active Substance: SULFAMETHOXAZOLE\TRIMETHOPRIM
     Indication: SEPTIC SHOCK
     Route: 065
     Dates: start: 2016
  3. AMPICILLIN [Suspect]
     Active Substance: AMPICILLIN
     Indication: SEPTIC SHOCK
  4. AMPHOTERICIN [Suspect]
     Active Substance: AMPHOTERICIN B
     Indication: SEPTIC SHOCK
     Route: 065
     Dates: start: 2016
  5. DEXAMETHASONE. [Concomitant]
     Active Substance: DEXAMETHASONE
     Indication: CHOLESTASIS
  6. FLUCONAZOLE IN SODIUM CHLORIDE INJECTION USP [Suspect]
     Active Substance: FLUCONAZOLE
     Indication: SEPTIC SHOCK
     Route: 065
     Dates: start: 2016
  7. AMPICILLIN [Suspect]
     Active Substance: AMPICILLIN
     Indication: ANTIBIOTIC PROPHYLAXIS
     Route: 042
     Dates: start: 2016
  8. MEROPENEM. [Suspect]
     Active Substance: MEROPENEM
     Indication: SEPTIC SHOCK
     Route: 065
     Dates: start: 2016
  9. VANCOMYCIN INJECTION USP IN 5% DEXTROSE [Suspect]
     Active Substance: VANCOMYCIN
     Indication: SEPTIC SHOCK
     Route: 065
     Dates: start: 2016
  10. DEXAMETHASONE. [Concomitant]
     Active Substance: DEXAMETHASONE
     Indication: BRONCHOPULMONARY DYSPLASIA
     Dosage: STARTED ON DOL16
     Route: 065
     Dates: start: 2016, end: 2016
  11. TOBRAMYCIN. [Suspect]
     Active Substance: TOBRAMYCIN
     Indication: SEPTIC SHOCK
  12. TOBRAMYCIN. [Suspect]
     Active Substance: TOBRAMYCIN
     Indication: AMNIOTIC CAVITY INFECTION
  13. AMPICILLIN [Suspect]
     Active Substance: AMPICILLIN
     Indication: AMNIOTIC CAVITY INFECTION
     Route: 065
     Dates: start: 2016
  14. PIPERACILLIN AND TAZOBACTAM [Suspect]
     Active Substance: PIPERACILLIN SODIUM\TAZOBACTAM SODIUM
     Indication: SEPTIC SHOCK
     Route: 065
     Dates: start: 2016

REACTIONS (1)
  - Drug ineffective [Fatal]

NARRATIVE: CASE EVENT DATE: 2016
